FAERS Safety Report 4810352-6 (Version None)
Quarter: 2005Q4

REPORT INFORMATION
  Report Type: 
  Country: None (occurrence: None)
  Receive Date: 20051024
  Receipt Date: 20051007
  Transmission Date: 20060501
  Serious: Yes (Hospitalization)
  Sender: FDA-Public Use
  Company Number: 217799

PATIENT
  Age: 71 Year
  Sex: Female
  Weight: 78.0187 kg

DRUGS (14)
  1. AVASTIN [Suspect]
     Indication: BREAST CANCER METASTATIC
     Dosage: 1200 MG Q3W INTRAVENOUS
     Route: 042
     Dates: start: 20050826, end: 20050826
  2. XELODA [Suspect]
     Indication: BREAST CANCER METASTATIC
     Dosage: 2000 MG BID ORAL
     Route: 048
     Dates: start: 20050826, end: 20050905
  3. MAG-OX (MAGNESIUM OXIDE) [Suspect]
  4. AVALID (HYDROCHLOROTHIAZIDE, IRBESARTAN) [Concomitant]
  5. CRESTOR [Concomitant]
  6. NORVASC (AMLODIPINE BEYLSATE) [Concomitant]
  7. VITAMIN B12 (CYANCOBALAMIN) [Concomitant]
  8. CALTRATE (CALCIUM CARBONATE) [Concomitant]
  9. ASPIRIN [Concomitant]
  10. PRILOSEC [Concomitant]
  11. DARVOCET-N 100 [Concomitant]
  12. TYLENOL ARTHRITIS (ACETAMINOPHEN) [Concomitant]
  13. ACETAMINOPHEN [Concomitant]
  14. ROSUVASTATIN (ROSUVASTATIN) [Concomitant]

REACTIONS (30)
  - BLOOD ALBUMIN DECREASED [None]
  - BLOOD GLUCOSE INCREASED [None]
  - BLOOD POTASSIUM DECREASED [None]
  - BODY TEMPERATURE INCREASED [None]
  - DECREASED APPETITE [None]
  - DIARRHOEA HAEMORRHAGIC [None]
  - EPISTAXIS [None]
  - FATIGUE [None]
  - GASTROINTESTINAL HAEMORRHAGE [None]
  - HAEMATEMESIS [None]
  - HAEMATOCHEZIA [None]
  - HAEMATOCRIT DECREASED [None]
  - HAEMOGLOBIN DECREASED [None]
  - HAEMORRHAGIC DIATHESIS [None]
  - HYPOCALCAEMIA [None]
  - LIP BLISTER [None]
  - METABOLIC ACIDOSIS [None]
  - METASTASES TO BONE [None]
  - METASTASES TO LIVER [None]
  - METASTATIC NEOPLASM [None]
  - MOUTH ULCERATION [None]
  - MUCOSAL HAEMORRHAGE [None]
  - MUCOSAL INFLAMMATION [None]
  - PARAESTHESIA [None]
  - PYREXIA [None]
  - RASH MACULAR [None]
  - RENAL FAILURE [None]
  - SKIN CANDIDA [None]
  - VAGINAL HAEMORRHAGE [None]
  - VOMITING [None]
